FAERS Safety Report 11105078 (Version 1)
Quarter: 2015Q2

REPORT INFORMATION
  Report Type: Spontaneous
  Country: DE (occurrence: DE)
  Receive Date: 20150511
  Receipt Date: 20150511
  Transmission Date: 20150821
  Serious: Yes (Hospitalization)
  Sender: FDA-Public Use
  Company Number: DE-AMGEN-DEUSP2015028100

PATIENT
  Age: 28 Year
  Sex: Female
  Weight: 77 kg

DRUGS (3)
  1. PREDNISOLONE. [Concomitant]
     Active Substance: PREDNISOLONE
     Dosage: 15 MG, UNK
  2. PREDNISOLONE. [Concomitant]
     Active Substance: PREDNISOLONE
     Indication: STILL^S DISEASE ADULT ONSET
     Dosage: 25 MG, UNK
     Dates: start: 201501
  3. ENBREL [Suspect]
     Active Substance: ETANERCEPT
     Indication: JUVENILE IDIOPATHIC ARTHRITIS
     Dosage: 50 MG, WEEKLY (ALL IN ALL 7 DOSES)
     Route: 065
     Dates: start: 2015, end: 201503

REACTIONS (5)
  - Skin mass [Unknown]
  - Vitamin B12 deficiency [Unknown]
  - Ventricular extrasystoles [Recovering/Resolving]
  - Sinus tachycardia [Recovering/Resolving]
  - Hypersensitivity vasculitis [Unknown]

NARRATIVE: CASE EVENT DATE: 2015
